FAERS Safety Report 21269435 (Version 1)
Quarter: 2022Q3

REPORT INFORMATION
  Report Type: Spontaneous
  Country: US (occurrence: US)
  Receive Date: 20220830
  Receipt Date: 20220830
  Transmission Date: 20221026
  Serious: Yes (Death, Other)
  Sender: FDA-Public Use
  Company Number: US-ASTELLAS-2022US030677

PATIENT
  Age: 38 Year
  Sex: Female

DRUGS (1)
  1. ERLOTINIB [Suspect]
     Active Substance: ERLOTINIB
     Indication: Lung adenocarcinoma recurrent
     Dosage: 150 MG, UNKNOWN FREQ. (ON AN EMPTY STOMACH)
     Route: 048

REACTIONS (5)
  - Metastases to central nervous system [Fatal]
  - Disease progression [Fatal]
  - Rash [Unknown]
  - Diarrhoea [Unknown]
  - Drug resistance [Fatal]
